FAERS Safety Report 5597390-3 (Version None)
Quarter: 2007Q4

REPORT INFORMATION
  Report Type: 
  Country: None (occurrence: None)
  Receive Date: 20071221
  Receipt Date: 20070918
  Transmission Date: 20080405
  Serious: No
  Sender: FDA-Public Use
  Company Number: SPV1-2007-04205

PATIENT
  Age: 53 Year
  Sex: Female
  Weight: 61.2 kg

DRUGS (3)
  1. VYVANSE [Suspect]
     Indication: ATTENTION DEFICIT/HYPERACTIVITY DISORDER
     Dosage: 70 MG, 1X/DAY:QD, ORAL
     Route: 048
     Dates: start: 20070913
  2. LEXAPRO [Concomitant]
  3. LAMICTAL [Concomitant]

REACTIONS (2)
  - FATIGUE [None]
  - OFF LABEL USE [None]
